FAERS Safety Report 20551662 (Version 1)
Quarter: 2022Q1

REPORT INFORMATION
  Report Type: Spontaneous
  Country: DK (occurrence: DK)
  Receive Date: 20220304
  Receipt Date: 20220304
  Transmission Date: 20220423
  Serious: Yes (Death)
  Sender: FDA-Public Use
  Company Number: None

PATIENT
  Age: 51 Year
  Sex: Male

DRUGS (2)
  1. QUETIAPINE [Suspect]
     Active Substance: QUETIAPINE
     Indication: Psychotic disorder
     Route: 048
     Dates: start: 20170410
  2. OXAZEPAM [Suspect]
     Active Substance: OXAZEPAM
     Indication: Psychotic disorder
     Dosage: STRENGTH: 15 MG.
     Route: 048
     Dates: start: 20170410

REACTIONS (3)
  - Suicidal ideation [Fatal]
  - Completed suicide [Fatal]
  - Psychotic disorder [Fatal]

NARRATIVE: CASE EVENT DATE: 20170401
